FAERS Safety Report 7178491-5 (Version None)
Quarter: 2010Q4

REPORT INFORMATION
  Report Type: 
  Country: None (occurrence: None)
  Receive Date: 20101220
  Receipt Date: 20101213
  Transmission Date: 20110411
  Serious: Yes (Hospitalization)
  Sender: FDA-Public Use
  Company Number: FR-ABBOTT-10P-056-0691078-00

PATIENT
  Age: 32 Year
  Sex: Male

DRUGS (4)
  1. VALPROATE SODIUM [Suspect]
     Indication: DEPRESSION
     Route: 048
     Dates: start: 20100706, end: 20101101
  2. DOSULEPIN [Suspect]
     Indication: DEPRESSION
     Route: 048
     Dates: end: 20101101
  3. BUPRENORPHINE [Concomitant]
     Indication: PRODUCT USED FOR UNKNOWN INDICATION
  4. BACLOFEN [Concomitant]
     Indication: PRODUCT USED FOR UNKNOWN INDICATION

REACTIONS (5)
  - AGITATION [None]
  - CONFUSIONAL STATE [None]
  - DRUG INTOLERANCE [None]
  - HEPATITIS C [None]
  - TREMOR [None]
